FAERS Safety Report 9034244 (Version 1)
Quarter: 2013Q1

REPORT INFORMATION
  Report Type: Spontaneous
  Country: US (occurrence: None)
  Receive Date: 20130116
  Receipt Date: 20130116
  Transmission Date: 20140127
  Serious: Yes (Disabling, Other)
  Sender: FDA-Public Use
  Company Number: None

PATIENT
  Age: 47 Year
  Sex: Female
  Weight: 64.86 kg

DRUGS (1)
  1. AMBIEN [Suspect]
     Indication: INSOMNIA
     Route: 048
     Dates: start: 20101006, end: 20121029

REACTIONS (8)
  - Amnesia [None]
  - Pelvic discomfort [None]
  - Dysuria [None]
  - Discomfort [None]
  - Abdominal discomfort [None]
  - Urinary retention [None]
  - Gastrointestinal disorder [None]
  - Feeling abnormal [None]
